FAERS Safety Report 12074557 (Version 1)
Quarter: 2016Q1

REPORT INFORMATION
  Report Type: Spontaneous
  Country: US (occurrence: US)
  Receive Date: 20160212
  Receipt Date: 20160212
  Transmission Date: 20160526
  Serious: No
  Sender: FDA-Public Use
  Company Number: US-LANTHEUS-LMI-2015-00266

PATIENT
  Sex: Female

DRUGS (1)
  1. ABLAVAR [Suspect]
     Active Substance: GADOFOSVESET TRISODIUM
     Indication: NUCLEAR MAGNETIC RESONANCE IMAGING
     Dosage: DOSE AND DILUENT NOT PROVIDED
     Route: 040
     Dates: start: 2014, end: 2014

REACTIONS (3)
  - Injection site pruritus [Unknown]
  - Rash [Unknown]
  - Urticaria [Unknown]

NARRATIVE: CASE EVENT DATE: 2014
